FAERS Safety Report 14162614 (Version 2)
Quarter: 2017Q4

REPORT INFORMATION
  Report Type: Spontaneous
  Country: CA (occurrence: CA)
  Receive Date: 20171106
  Receipt Date: 20171227
  Transmission Date: 20180321
  Serious: Yes (Other)
  Sender: FDA-Public Use
  Company Number: CA-SA-2017SA211681

PATIENT
  Age: 41 Year
  Sex: Female
  Weight: 60 kg

DRUGS (4)
  1. ESCITALOPRAM [Concomitant]
     Active Substance: ESCITALOPRAM OXALATE
     Route: 048
  2. DEXAMETHASONE. [Concomitant]
     Active Substance: DEXAMETHASONE
     Indication: PREMEDICATION
     Route: 065
     Dates: start: 20161030
  3. ACETAMINOPHEN. [Concomitant]
     Active Substance: ACETAMINOPHEN
     Route: 065
  4. DOCETAXEL. [Suspect]
     Active Substance: DOCETAXEL
     Indication: BREAST CANCER
     Dosage: 164 MG IN 250 ML
     Route: 042
     Dates: start: 20161031, end: 20161031

REACTIONS (4)
  - Flushing [Recovered/Resolved]
  - Hypersensitivity [Recovered/Resolved]
  - Oxygen saturation decreased [Recovered/Resolved]
  - Dyspnoea [Recovered/Resolved]

NARRATIVE: CASE EVENT DATE: 20161031
